FAERS Safety Report 22199832 (Version 1)
Quarter: 2023Q2

REPORT INFORMATION
  Report Type: Spontaneous
  Country: IT (occurrence: IT)
  Receive Date: 20230412
  Receipt Date: 20230412
  Transmission Date: 20230721
  Serious: Yes (Other)
  Sender: FDA-Public Use
  Company Number: None

PATIENT
  Age: 68 Year
  Sex: Male

DRUGS (4)
  1. FLUOROURACIL [Suspect]
     Active Substance: FLUOROURACIL
     Indication: Pancreatic carcinoma
     Dates: start: 20230206, end: 20230227
  2. OXALIPLATIN [Suspect]
     Active Substance: OXALIPLATIN
     Indication: Pancreatic carcinoma
     Dates: start: 20230206, end: 20230227
  3. IRINOTECAN [Suspect]
     Active Substance: IRINOTECAN
     Indication: Pancreatic carcinoma
     Dates: start: 20230206, end: 20230227
  4. LEVOLEUCOVORIN [Concomitant]
     Active Substance: LEVOLEUCOVORIN
     Indication: Pancreatic carcinoma
     Dosage: ACIDO LEVO FOLINICO

REACTIONS (4)
  - Hyperbilirubinaemia [Recovering/Resolving]
  - Vomiting [Recovered/Resolved]
  - Hypertransaminasaemia [Recovering/Resolving]
  - Renal colic [Recovered/Resolved]

NARRATIVE: CASE EVENT DATE: 20230216
